FAERS Safety Report 14918313 (Version 1)
Quarter: 2018Q2

REPORT INFORMATION
  Report Type: Report from Study
  Country: ZA (occurrence: ZA)
  Receive Date: 20180521
  Receipt Date: 20180521
  Transmission Date: 20180711
  Serious: Yes (Death)
  Sender: FDA-Public Use
  Company Number: PHHY2018ZA006729

PATIENT
  Age: 72 Year
  Sex: Female

DRUGS (2)
  1. TEGRETAL [Suspect]
     Active Substance: CARBAMAZEPINE
     Indication: EPILEPSY
     Dosage: 200 MG, UNK
     Route: 048
  2. COXLEON [Suspect]
     Active Substance: CELECOXIB
     Indication: PAIN
     Dosage: 100 MG, UNK
     Route: 048

REACTIONS (1)
  - Death [Fatal]

NARRATIVE: CASE EVENT DATE: 20180425
